FAERS Safety Report 4595070-4 (Version None)
Quarter: 2005Q1

REPORT INFORMATION
  Report Type: 
  Country: None (occurrence: None)
  Receive Date: 20050223
  Receipt Date: 20050208
  Transmission Date: 20050727
  Serious: Yes (Life-Threatening, Other)
  Sender: FDA-Public Use
  Company Number: 2005-SW-00060SF

PATIENT
  Age: 46 Year
  Sex: Male

DRUGS (1)
  1. ATROVENT [Suspect]
     Indication: OBSTRUCTION
     Dosage: IH
     Route: 055
     Dates: start: 20041230, end: 20050103

REACTIONS (2)
  - ANAPHYLACTIC SHOCK [None]
  - RESPIRATORY FAILURE [None]
